FAERS Safety Report 4555497-3 (Version None)
Quarter: 2005Q1

REPORT INFORMATION
  Report Type: 
  Country: None (occurrence: None)
  Receive Date: 20050119
  Receipt Date: 20050110
  Transmission Date: 20050727
  Serious: Yes (Hospitalization)
  Sender: FDA-Public Use
  Company Number: US-SOLVAY-00205000061

PATIENT
  Age: 11016 Day
  Sex: Female
  Weight: 60.5 kg

DRUGS (2)
  1. ROWASA [Suspect]
     Indication: ILL-DEFINED DISORDER
     Dosage: DAILY DOSE: 4 GRAM(S) ONCE
     Route: 054
     Dates: start: 20041120, end: 20041120
  2. STUDY DRUG [Concomitant]
     Indication: ILL-DEFINED DISORDER
     Dosage: DAILY DOSE:  UNKNOWN
     Route: 065

REACTIONS (3)
  - ABDOMINAL PAIN UPPER [None]
  - GALLBLADDER DISORDER [None]
  - VOMITING [None]
